FAERS Safety Report 7590887-6 (Version None)
Quarter: 2011Q3

REPORT INFORMATION
  Report Type: 
  Country: None (occurrence: None)
  Receive Date: 20110705
  Receipt Date: 20110624
  Transmission Date: 20111222
  Serious: No
  Sender: FDA-Public Use
  Company Number: PHHY2011US57067

PATIENT
  Sex: Female

DRUGS (11)
  1. TASIGNA [Suspect]
     Indication: LEUKAEMIA
     Dosage: 200 MG, BID
     Route: 048
  2. TACROLIMUS [Concomitant]
  3. SULFAMETHOXAZOLE [Concomitant]
  4. FLUCONAZOLE [Concomitant]
  5. URSODIOL [Concomitant]
  6. LORAZEPAM [Concomitant]
  7. AVIANE-28 [Concomitant]
  8. PROTONIX [Concomitant]
  9. VALACICLOVIR [Concomitant]
  10. GLYBURIDE [Concomitant]
  11. CELLCEPT [Concomitant]

REACTIONS (1)
  - RASH [None]
